FAERS Safety Report 5905426-2 (Version None)
Quarter: 2008Q4

REPORT INFORMATION
  Report Type: 
  Country: None (occurrence: None)
  Receive Date: 20081001
  Receipt Date: 20081001
  Transmission Date: 20090506
  Serious: Yes (Hospitalization)
  Sender: FDA-Public Use
  Company Number: None

PATIENT
  Age: 17 Year
  Sex: Female

DRUGS (1)
  1. TUBERSOL [Suspect]
     Indication: TUBERCULIN TEST
     Dosage: 0.1 ML X'S 1 ID
     Route: 023
     Dates: start: 20080905, end: 20080905

REACTIONS (7)
  - CONVULSION [None]
  - DROOLING [None]
  - DYSPHAGIA [None]
  - DYSPNOEA [None]
  - LOSS OF CONSCIOUSNESS [None]
  - MYOCLONUS [None]
  - SYNCOPE [None]
